FAERS Safety Report 5634686-0 (Version None)
Quarter: 2008Q1

REPORT INFORMATION
  Report Type: 
  Country: None (occurrence: None)
  Receive Date: 20080222
  Receipt Date: 20080219
  Transmission Date: 20080703
  Serious: Yes (Hospitalization)
  Sender: FDA-Public Use
  Company Number: FR-BRISTOL-MYERS SQUIBB COMPANY-14083976

PATIENT
  Age: 75 Year
  Sex: Male

DRUGS (8)
  1. HYDREA [Suspect]
     Dates: start: 20071205, end: 20080110
  2. ACETAMINOPHEN [Concomitant]
  3. KARDEGIC [Concomitant]
  4. BENAZEPRIL HCL [Concomitant]
  5. LIPANTHYL [Concomitant]
  6. CHRONADALATE [Concomitant]
     Dosage: CHRONADALATE LP
  7. LOCABIOTAL [Concomitant]
  8. PAXELADINE [Concomitant]
     Dosage: FREQUENCY: 3 TO 4/DAY

REACTIONS (4)
  - CHILLS [None]
  - CHOLELITHIASIS [None]
  - HEPATIC STEATOSIS [None]
  - PYREXIA [None]
